FAERS Safety Report 26183918 (Version 1)
Quarter: 2025Q4

REPORT INFORMATION
  Report Type: Spontaneous
  Country: US (occurrence: US)
  Receive Date: 20251222
  Receipt Date: 20251222
  Transmission Date: 20260117
  Serious: No
  Sender: ELI LILLY AND COMPANY
  Company Number: US-ELI_LILLY_AND_COMPANY-US202512023765

PATIENT
  Sex: Female

DRUGS (1)
  1. INLURIYO [Suspect]
     Active Substance: IMLUNESTRANT
     Indication: Breast cancer
     Dosage: UNK UNK, UNKNOWN
     Route: 065
     Dates: start: 20251119

REACTIONS (1)
  - Hepatic enzyme increased [Recovered/Resolved]
